FAERS Safety Report 17035985 (Version 1)
Quarter: 2019Q4

REPORT INFORMATION
  Report Type: Spontaneous
  Country: US (occurrence: US)
  Receive Date: 20191115
  Receipt Date: 20191115
  Transmission Date: 20200122
  Serious: No
  Sender: FDA-Public Use
  Company Number: US-BIOGEN-2019BI00779291

PATIENT
  Sex: Male

DRUGS (1)
  1. TYSABRI [Suspect]
     Active Substance: NATALIZUMAB
     Indication: MULTIPLE SCLEROSIS
     Route: 065

REACTIONS (6)
  - Fatigue [Unknown]
  - Multiple sclerosis [Unknown]
  - Injection site pain [Unknown]
  - Dyspepsia [Unknown]
  - Hypoaesthesia [Unknown]
  - Alopecia [Unknown]
